FAERS Safety Report 6134841-X (Version None)
Quarter: 2009Q1

REPORT INFORMATION
  Report Type: 
  Country: None (occurrence: None)
  Receive Date: 20090327
  Receipt Date: 20090318
  Transmission Date: 20090719
  Serious: Yes (Other)
  Sender: FDA-Public Use
  Company Number: US-JNJFOC-20080701949

PATIENT
  Sex: Female
  Weight: 78.93 kg

DRUGS (2)
  1. ORTHO EVRA [Suspect]
     Indication: CONTRACEPTION
     Route: 062
  2. LOESTRIN 1.5/30 [Suspect]
     Indication: CONTRACEPTION

REACTIONS (3)
  - BENIGN INTRACRANIAL HYPERTENSION [None]
  - NAUSEA [None]
  - VOMITING [None]
